FAERS Safety Report 7560461-6 (Version None)
Quarter: 2011Q2

REPORT INFORMATION
  Report Type: 
  Country: None (occurrence: None)
  Receive Date: 20110621
  Receipt Date: 20110613
  Transmission Date: 20111010
  Serious: Yes (Death, Hospitalization, Other)
  Sender: FDA-Public Use
  Company Number: GB-TEVA-285438ISR

PATIENT

DRUGS (6)
  1. CYCLOSPORINE [Concomitant]
     Indication: GRAFT VERSUS HOST DISEASE
  2. THIOTEPA [Concomitant]
  3. CYCLOPHOSPHAMIDE [Concomitant]
  4. METHOTREXATE [Suspect]
     Indication: GRAFT VERSUS HOST DISEASE
  5. CAMPATH [Concomitant]
  6. BUSULFAN [Concomitant]

REACTIONS (2)
  - CYTOMEGALOVIRUS INFECTION [None]
  - VENOOCCLUSIVE DISEASE [None]
